FAERS Safety Report 23660400 (Version 3)
Quarter: 2024Q2

REPORT INFORMATION
  Report Type: Spontaneous
  Country: JP (occurrence: JP)
  Receive Date: 20240321
  Receipt Date: 20240521
  Transmission Date: 20240716
  Serious: Yes (Hospitalization)
  Sender: FDA-Public Use
  Company Number: None

PATIENT

DRUGS (9)
  1. BENLYSTA [Suspect]
     Active Substance: BELIMUMAB
     Indication: Systemic lupus erythematosus
     Dosage: 10 MG, SINGLE DOSE
     Dates: start: 20240221, end: 20240221
  2. BENLYSTA [Suspect]
     Active Substance: BELIMUMAB
     Dosage: 10 MG/KG
     Dates: start: 20240321, end: 20240321
  3. PREDONINE [Suspect]
     Active Substance: PREDNISOLONE
     Indication: Neuropsychiatric lupus
     Dosage: UNK UNK, QD
     Dates: start: 20240201, end: 2024
  4. PREDONINE [Suspect]
     Active Substance: PREDNISOLONE
     Indication: Headache
     Dosage: UNK UNK, QD
     Dates: start: 2024, end: 2024
  5. PREDONINE [Suspect]
     Active Substance: PREDNISOLONE
     Dosage: 65 MG, QD
     Dates: start: 20240216, end: 2024
  6. PREDONINE [Suspect]
     Active Substance: PREDNISOLONE
     Dosage: 45 MG, QD
     Dates: start: 20240302, end: 20240307
  7. PREDONINE [Suspect]
     Active Substance: PREDNISOLONE
     Dosage: 35 MG, QD
     Dates: start: 20240308, end: 20240314
  8. PREDONINE [Suspect]
     Active Substance: PREDNISOLONE
     Dosage: 30 MG, QD
     Dates: start: 20240315
  9. BENLYSTA [Concomitant]
     Active Substance: BELIMUMAB
     Dosage: UNK
     Dates: start: 20240424

REACTIONS (6)
  - Substance-induced psychotic disorder [Recovering/Resolving]
  - Restlessness [Recovering/Resolving]
  - Hypomania [Recovering/Resolving]
  - Screaming [Recovering/Resolving]
  - Hyperventilation [Recovering/Resolving]
  - Dyskinesia [Recovering/Resolving]

NARRATIVE: CASE EVENT DATE: 20240302
